FAERS Safety Report 23936341 (Version 1)
Quarter: 2024Q2

REPORT INFORMATION
  Report Type: Spontaneous
  Country: CA (occurrence: CA)
  Receive Date: 20240604
  Receipt Date: 20240604
  Transmission Date: 20240716
  Serious: Yes (Hospitalization, Other)
  Sender: FDA-Public Use
  Company Number: CA-STRIDES ARCOLAB LIMITED-2024SP006359

PATIENT
  Age: 11 Year
  Sex: Female

DRUGS (8)
  1. POLYETHYLENE GLYCOL 3350 [Suspect]
     Active Substance: POLYETHYLENE GLYCOL 3350
     Indication: Constipation
     Dosage: UNK
     Route: 065
  2. POLYETHYLENE GLYCOL 3350 [Suspect]
     Active Substance: POLYETHYLENE GLYCOL 3350
     Indication: Anal incontinence
     Dosage: UNK, (RESUMED AFTER BOWEL CLEAN OUT)
     Route: 065
  3. BISACODYL [Suspect]
     Active Substance: BISACODYL
     Indication: Constipation
     Dosage: UNK (CRUSHED BISACODYL)
     Route: 065
  4. BISACODYL [Suspect]
     Active Substance: BISACODYL
     Indication: Anal incontinence
     Dosage: UNK, (RESUMED AFTER BOWEL CLEAN OUT)
     Route: 065
  5. GLYCERIN [Suspect]
     Active Substance: GLYCERIN
     Indication: Constipation
     Dosage: UNK
     Route: 065
  6. GLYCERIN [Suspect]
     Active Substance: GLYCERIN
     Indication: Anal incontinence
     Dosage: UNK, (RESUMED AFTER BOWEL CLEAN OUT)
     Route: 065
  7. SODIUM CHLORIDE [Suspect]
     Active Substance: SODIUM CHLORIDE
     Indication: Constipation
     Dosage: 300 MILLILITER
     Route: 065
  8. SODIUM CHLORIDE [Suspect]
     Active Substance: SODIUM CHLORIDE
     Indication: Anal incontinence
     Dosage: UNK, (RESUMED AFTER BOWEL CLEAN OUT)
     Route: 065

REACTIONS (4)
  - Drug ineffective [Unknown]
  - Vomiting [Recovered/Resolved]
  - Abdominal distension [Recovered/Resolved]
  - Abdominal pain [Recovered/Resolved]
